FAERS Safety Report 18119930 (Version 4)
Quarter: 2025Q3

REPORT INFORMATION
  Report Type: Spontaneous
  Country: JP (occurrence: JP)
  Receive Date: 20200806
  Receipt Date: 20250803
  Transmission Date: 20251020
  Serious: Yes (Other)
  Sender: ALEXION PHARMACEUTICALS
  Company Number: 2020SE95605

PATIENT
  Age: 69 Year
  Sex: Male

DRUGS (1)
  1. IMFINZI [Suspect]
     Active Substance: DURVALUMAB
     Indication: Non-small cell lung cancer
     Dosage: 10 MILLIGRAM/KILOGRAM, Q2W

REACTIONS (2)
  - Metastases to central nervous system [Unknown]
  - Pneumonia [Unknown]
